FAERS Safety Report 21404434 (Version 3)
Quarter: 2022Q4

REPORT INFORMATION
  Report Type: Spontaneous
  Country: LT (occurrence: LT)
  Receive Date: 20221003
  Receipt Date: 20221206
  Transmission Date: 20230112
  Serious: Yes (Other)
  Sender: FDA-Public Use
  Company Number: LT-BRISTOL-MYERS SQUIBB COMPANY-2022-114846

PATIENT
  Sex: Female

DRUGS (1)
  1. ELIQUIS [Suspect]
     Active Substance: APIXABAN
     Indication: Cerebrovascular accident prophylaxis
     Route: 065

REACTIONS (2)
  - Eye haemorrhage [Unknown]
  - Thrombocytopenia [Unknown]
